FAERS Safety Report 15620804 (Version 1)
Quarter: 2018Q4

REPORT INFORMATION
  Report Type: Report from Study
  Country: CN (occurrence: CN)
  Receive Date: 20181115
  Receipt Date: 20181115
  Transmission Date: 20190205
  Serious: Yes (Other)
  Sender: FDA-Public Use
  Company Number: CN-ROCHE-2212896

PATIENT

DRUGS (1)
  1. BEVACIZUMAB. [Suspect]
     Active Substance: BEVACIZUMAB
     Indication: COLORECTAL CANCER
     Dosage: STARTING FROM THE SECOND DAY AFTER CHEMOTHERAPY, WHICH WAS REPEATED EVERY 2 WEEKS, FOR AT LEAST 4 TI
     Route: 041

REACTIONS (8)
  - Cerebral haemorrhage [Unknown]
  - Intestinal obstruction [Unknown]
  - Wound complication [Unknown]
  - Epistaxis [Unknown]
  - Proteinuria [Unknown]
  - Bradycardia [Unknown]
  - Hypertension [Unknown]
  - Stomatitis [Unknown]
